FAERS Safety Report 5330792-9 (Version None)
Quarter: 2007Q2

REPORT INFORMATION
  Report Type: 
  Country: None (occurrence: None)
  Receive Date: 20070522
  Receipt Date: 20070515
  Transmission Date: 20071010
  Serious: Yes (Other)
  Sender: FDA-Public Use
  Company Number: US-JNJFOC-20070405519

PATIENT
  Sex: Female
  Weight: 78.93 kg

DRUGS (6)
  1. LEVAQUIN [Suspect]
     Indication: SINUSITIS
     Route: 048
  2. FAMIVIR [Concomitant]
     Route: 065
  3. MULTIPLE DRUGS [Concomitant]
     Route: 065
  4. ALBUTEROL [Concomitant]
     Route: 065
  5. MEDROL [Concomitant]
     Route: 065
  6. ULTRACET [Concomitant]
     Route: 065

REACTIONS (5)
  - ARTHRALGIA [None]
  - DIARRHOEA [None]
  - HEADACHE [None]
  - PERIARTHRITIS [None]
  - PHARYNGOLARYNGEAL PAIN [None]
